FAERS Safety Report 10034139 (Version 1)
Quarter: 2014Q1

REPORT INFORMATION
  Report Type: Spontaneous
  Country: US (occurrence: None)
  Receive Date: 20140324
  Receipt Date: 20140324
  Transmission Date: 20141002
  Serious: Yes (Life-Threatening, Other)
  Sender: FDA-Public Use
  Company Number: None

PATIENT
  Age: 35 Year
  Sex: Female
  Weight: 81.65 kg

DRUGS (1)
  1. DIPHENHYDRAMINE HCL [Suspect]
     Indication: INSOMNIA
     Dates: start: 20140101, end: 20140321

REACTIONS (12)
  - Hallucination [None]
  - Dizziness [None]
  - Incoherent [None]
  - Confusional state [None]
  - Abnormal behaviour [None]
  - Heart rate irregular [None]
  - Amnesia [None]
  - Vomiting [None]
  - Paranoia [None]
  - Gastrooesophageal reflux disease [None]
  - Oesophageal pain [None]
  - Poverty of thought content [None]
